FAERS Safety Report 18513822 (Version 1)
Quarter: 2020Q4

REPORT INFORMATION
  Report Type: Spontaneous
  Country: US (occurrence: US)
  Receive Date: 20201117
  Receipt Date: 20201117
  Transmission Date: 20210114
  Serious: Yes (Hospitalization)
  Sender: FDA-Public Use
  Company Number: US-CARDINAL HEALTH 414, LLC-2096040

PATIENT
  Age: 83 Year
  Sex: Male
  Weight: 78.18 kg

DRUGS (1)
  1. FLUDEOXYGLUCOSE F-18. [Suspect]
     Active Substance: FLUDEOXYGLUCOSE F-18
     Indication: DEMENTIA
     Route: 042
     Dates: start: 20200717, end: 20200717

REACTIONS (11)
  - Nausea [Not Recovered/Not Resolved]
  - Taste disorder [Not Recovered/Not Resolved]
  - Insomnia [Recovered/Resolved]
  - Prurigo [Recovering/Resolving]
  - Anosmia [Not Recovered/Not Resolved]
  - Abdominal discomfort [Not Recovered/Not Resolved]
  - Gastrointestinal pain [Recovered/Resolved]
  - Off label use [Recovered/Resolved]
  - Ageusia [Not Recovered/Not Resolved]
  - Weight decreased [Recovered/Resolved]
  - Impetigo [Recovered/Resolved]

NARRATIVE: CASE EVENT DATE: 20200717
